FAERS Safety Report 6726550-0 (Version None)
Quarter: 2010Q2

REPORT INFORMATION
  Report Type: 
  Country: None (occurrence: None)
  Receive Date: 20100514
  Receipt Date: 20100216
  Transmission Date: 20101027
  Serious: No
  Sender: FDA-Public Use
  Company Number: US-BRISTOL-MYERS SQUIBB COMPANY-14974281

PATIENT
  Sex: Female

DRUGS (1)
  1. IXEMPRA KIT [Suspect]

REACTIONS (3)
  - ERYTHEMA [None]
  - INFUSION SITE EXTRAVASATION [None]
  - OEDEMA PERIPHERAL [None]
